FAERS Safety Report 19278914 (Version 1)
Quarter: 2021Q2

REPORT INFORMATION
  Report Type: Spontaneous
  Country: US (occurrence: US)
  Receive Date: 20210520
  Receipt Date: 20210520
  Transmission Date: 20210717
  Serious: Yes (Other)
  Sender: FDA-Public Use
  Company Number: None

PATIENT
  Age: 47 Year
  Sex: Female

DRUGS (4)
  1. NYSTATIN. [Concomitant]
     Active Substance: NYSTATIN
  2. IBUPROFEN. [Concomitant]
     Active Substance: IBUPROFEN
  3. COLCHICINE. [Concomitant]
     Active Substance: COLCHICINE
  4. HUMIRA [Suspect]
     Active Substance: ADALIMUMAB
     Indication: PSORIATIC ARTHROPATHY
     Dosage: ?          OTHER FREQUENCY:EVERY 14 DAYS;?
     Route: 058
     Dates: start: 20210421

REACTIONS (3)
  - Vomiting [None]
  - Dyspnoea [None]
  - Hypersensitivity [None]
